FAERS Safety Report 9208671 (Version 1)
Quarter: 2013Q2

REPORT INFORMATION
  Report Type: Spontaneous
  Country: US (occurrence: None)
  Receive Date: 20130402
  Receipt Date: 20130402
  Transmission Date: 20140414
  Serious: Yes (Other)
  Sender: FDA-Public Use
  Company Number: None

PATIENT
  Age: 69 Year
  Sex: Female

DRUGS (1)
  1. TARCEVA 150 MG GENENTECH [Suspect]
     Route: 048
     Dates: start: 20130306, end: 20130322

REACTIONS (1)
  - Rash [None]
